FAERS Safety Report 16227896 (Version 1)
Quarter: 2019Q2

REPORT INFORMATION
  Report Type: Spontaneous
  Country: US (occurrence: US)
  Receive Date: 20190318
  Receipt Date: 20190318
  Transmission Date: 20190711
  Serious: Yes (Hospitalization)
  Sender: FDA-Public Use
  Company Number: None

PATIENT
  Age: 60 Year
  Sex: Male
  Weight: 80.2 kg

DRUGS (9)
  1. ZOFRAN [Concomitant]
     Active Substance: ONDANSETRON HYDROCHLORIDE
  2. 5-FLUOROURACIL (5-FU) [Suspect]
     Active Substance: FLUOROURACIL
     Dates: end: 20190227
  3. CAMPTOSAR [Suspect]
     Active Substance: IRINOTECAN HYDROCHLORIDE
     Dates: end: 20190227
  4. LEUCOVORIN CALCIUM. [Suspect]
     Active Substance: LEUCOVORIN CALCIUM
     Dates: end: 20190227
  5. MSIR [Concomitant]
     Active Substance: MORPHINE SULFATE
  6. COMPAZINE [Concomitant]
     Active Substance: PROCHLORPERAZINE MALEATE
  7. MS CONTIN [Concomitant]
     Active Substance: MORPHINE SULFATE
  8. ELOXATIN [Suspect]
     Active Substance: OXALIPLATIN
     Dates: end: 20190227
  9. SENOKOT [Concomitant]
     Active Substance: SENNOSIDES

REACTIONS (5)
  - Bacteraemia [None]
  - Deep vein thrombosis [None]
  - Staphylococcal infection [None]
  - Catheter site erythema [None]
  - Thrombophlebitis [None]

NARRATIVE: CASE EVENT DATE: 20190306
